FAERS Safety Report 6648553-7 (Version None)
Quarter: 2010Q1

REPORT INFORMATION
  Report Type: 
  Country: None (occurrence: None)
  Receive Date: 20100319
  Receipt Date: 20100317
  Transmission Date: 20100710
  Serious: Yes (Other)
  Sender: FDA-Public Use
  Company Number: CRC-10-049

PATIENT
  Age: 76 Year
  Sex: Male

DRUGS (6)
  1. METFORMIN HYDROCHLORIDE [Suspect]
     Indication: TYPE 2 DIABETES MELLITUS
     Dosage: 500 MG TWICE DAILY
     Dates: start: 20091029, end: 20100103
  2. DILTIAZEM HCL [Concomitant]
  3. FUROSEMIDE [Concomitant]
  4. POTASSIUM GLUCONATE TAB [Concomitant]
  5. FISH OIL [Concomitant]
  6. WARFARIN SODIUM [Concomitant]

REACTIONS (1)
  - PROSTATE CANCER [None]
